FAERS Safety Report 7398801-3 (Version None)
Quarter: 2011Q2

REPORT INFORMATION
  Report Type: 
  Country: None (occurrence: None)
  Receive Date: 20110404
  Receipt Date: 20110404
  Transmission Date: 20111010
  Serious: No
  Sender: FDA-Public Use
  Company Number: None

PATIENT
  Sex: Female

DRUGS (3)
  1. ARIMIDEX [Suspect]
  2. AROMASIN [Suspect]
     Indication: BREAST CANCER
     Dosage: 25MG QD PO
     Route: 048
     Dates: start: 20101022
  3. ANASTROZOLE [Suspect]
     Indication: BREAST CANCER
     Dosage: 1MG QD PO
     Route: 048
     Dates: start: 20100715, end: 20101010

REACTIONS (3)
  - PRODUCT SUBSTITUTION ISSUE [None]
  - ABASIA [None]
  - PAIN IN EXTREMITY [None]
